FAERS Safety Report 21484297 (Version 1)
Quarter: 2022Q4

REPORT INFORMATION
  Report Type: Spontaneous
  Country: CN (occurrence: CN)
  Receive Date: 20221020
  Receipt Date: 20221020
  Transmission Date: 20230113
  Serious: Yes (Other)
  Sender: FDA-Public Use
  Company Number: CN-ELI_LILLY_AND_COMPANY-CN202210003865

PATIENT
  Age: 72 Year
  Sex: Male

DRUGS (3)
  1. ABEMACICLIB [Suspect]
     Active Substance: ABEMACICLIB
     Indication: Cardiac valve fibroelastoma
     Dosage: 100 MG, BID (2 TIMES 1 DAY )
     Route: 048
     Dates: start: 20220913, end: 20220930
  2. PEMBROLIZUMAB [Suspect]
     Active Substance: PEMBROLIZUMAB
     Indication: Cardiac valve fibroelastoma
     Dosage: 200 MG, DAILY
     Route: 041
     Dates: start: 20220913, end: 20220913
  3. CATEQUENTINIB DIHYDROCHLORIDE [Suspect]
     Active Substance: CATEQUENTINIB DIHYDROCHLORIDE
     Indication: Cardiac valve fibroelastoma
     Dosage: 12 MG, DAILY
     Route: 048
     Dates: start: 20220913, end: 20220930

REACTIONS (2)
  - Myelosuppression [Recovering/Resolving]
  - Off label use [Unknown]

NARRATIVE: CASE EVENT DATE: 20220930
